FAERS Safety Report 16725284 (Version 1)
Quarter: 2019Q3

REPORT INFORMATION
  Report Type: Spontaneous
  Country: FR (occurrence: FR)
  Receive Date: 20190821
  Receipt Date: 20190821
  Transmission Date: 20191005
  Serious: Yes (Other)
  Sender: FDA-Public Use
  Company Number: FR-NOVOPROD-679094

PATIENT
  Age: 74 Year
  Sex: Female
  Weight: 134 kg

DRUGS (7)
  1. ABASAGLAR [Interacting]
     Active Substance: INSULIN GLARGINE
     Dosage: UNK
     Route: 058
  2. OFLOXACINE [Interacting]
     Active Substance: OFLOXACIN
     Indication: OSTEITIS
     Dosage: 200 MG, QD
     Route: 048
     Dates: start: 20190709, end: 20190723
  3. ABASAGLAR [Interacting]
     Active Substance: INSULIN GLARGINE
     Indication: TYPE 2 DIABETES MELLITUS
     Dosage: UNK
     Route: 058
     Dates: start: 20190624
  4. HUMALOG [Interacting]
     Active Substance: INSULIN LISPRO
     Indication: TYPE 2 DIABETES MELLITUS
     Dosage: 78 IU, QD
     Route: 058
  5. AMOXICILLIN. [Concomitant]
     Active Substance: AMOXICILLIN
     Indication: OSTEITIS
     Dosage: 6 G, QD
     Route: 048
     Dates: start: 20190709, end: 20190723
  6. METFORMIN [Interacting]
     Active Substance: METFORMIN HYDROCHLORIDE
     Indication: TYPE 2 DIABETES MELLITUS
     Dosage: 1700 MG, QD
     Route: 048
  7. VICTOZA [Suspect]
     Active Substance: LIRAGLUTIDE
     Indication: TYPE 2 DIABETES MELLITUS
     Dosage: 1.8 MG, QD
     Route: 058
     Dates: start: 20190624

REACTIONS (2)
  - Drug interaction [Recovered/Resolved]
  - Hypoglycaemia [Recovered/Resolved]

NARRATIVE: CASE EVENT DATE: 20190711
